FAERS Safety Report 9166102 (Version 2)
Quarter: 2013Q2

REPORT INFORMATION
  Report Type: Report from Study
  Country: US (occurrence: US)
  Receive Date: 20130315
  Receipt Date: 20130513
  Transmission Date: 20140414
  Serious: Yes (Hospitalization)
  Sender: FDA-Public Use
  Company Number: US-US-EMD SERONO, INC.-7198749

PATIENT
  Age: 60 Year
  Sex: Female

DRUGS (3)
  1. REBIF [Suspect]
     Indication: PRODUCT USED FOR UNKNOWN INDICATION
     Route: 058
     Dates: start: 20091013
  2. REBIF [Suspect]
     Route: 058
     Dates: end: 20130418
  3. TYLENOL [Concomitant]
     Indication: PREMEDICATION

REACTIONS (8)
  - Urinary tract infection [Unknown]
  - Urinary bladder haemorrhage [Unknown]
  - Transfusion [Unknown]
  - Dehydration [Unknown]
  - Memory impairment [Not Recovered/Not Resolved]
  - Abdominal discomfort [Not Recovered/Not Resolved]
  - Gait disturbance [Not Recovered/Not Resolved]
  - Influenza like illness [Not Recovered/Not Resolved]
